FAERS Safety Report 6187781-4 (Version None)
Quarter: 2009Q2

REPORT INFORMATION
  Report Type: 
  Country: None (occurrence: None)
  Receive Date: 20090511
  Receipt Date: 20090511
  Transmission Date: 20091009
  Serious: No
  Sender: FDA-Public Use
  Company Number: None

PATIENT
  Age: 62 Year
  Sex: Female
  Weight: 65.7716 kg

DRUGS (2)
  1. METHOCARBAMOL [Suspect]
     Indication: ANGINA PECTORIS
     Dosage: 450 MG ONCE PO
     Route: 048
     Dates: start: 20081107
  2. METHOCARBAMOL [Suspect]
     Indication: BACK PAIN
     Dosage: 450 MG ONCE PO
     Route: 048
     Dates: start: 20081107

REACTIONS (6)
  - CONTRAINDICATION TO MEDICAL TREATMENT [None]
  - DRUG DISPENSING ERROR [None]
  - DYSURIA [None]
  - INFLUENZA [None]
  - MEDICATION ERROR [None]
  - SKIN DISCOLOURATION [None]
